FAERS Safety Report 25092744 (Version 1)
Quarter: 2025Q1

REPORT INFORMATION
  Report Type: Spontaneous
  Country: CN (occurrence: CN)
  Receive Date: 20250319
  Receipt Date: 20250319
  Transmission Date: 20250408
  Serious: Yes (Other)
  Sender: ASTELLAS
  Company Number: CN-ASTELLAS-2025-AER-013919

PATIENT
  Age: 63 Year
  Sex: Male

DRUGS (3)
  1. PROGRAF [Suspect]
     Active Substance: TACROLIMUS
     Indication: Liver transplant
     Dosage: 1MG IN THE MORNING AND 1MG IN THE EVENING?1 MG TACROLIMUS CAPSULES
     Route: 065
  2. PROGRAF [Suspect]
     Active Substance: TACROLIMUS
     Indication: Liver transplant
     Dosage: 1MG IN THE MORNING AND 1MG IN THE EVENING?TWO 0.5 MG TACROLIMUS CAPSULES
     Route: 065
     Dates: start: 2010
  3. PROGRAF [Suspect]
     Active Substance: TACROLIMUS
     Dosage: 1MG IN THE MORNING AND 1MG IN THE EVENING?TWO 0.5 MG TACROLIMUS CAPSULES
     Route: 065

REACTIONS (6)
  - Altered state of consciousness [Unknown]
  - Blood pressure increased [Unknown]
  - Blood uric acid increased [Unknown]
  - Diarrhoea [Unknown]
  - Insomnia [Unknown]
  - Photosensitivity reaction [Unknown]
